FAERS Safety Report 16686592 (Version 3)
Quarter: 2019Q3

REPORT INFORMATION
  Report Type: Report from Study
  Country: CA (occurrence: CA)
  Receive Date: 20190809
  Receipt Date: 20190826
  Transmission Date: 20191004
  Serious: Yes (Death, Hospitalization, Other)
  Sender: FDA-Public Use
  Company Number: CA-B.I. PHARMACEUTICALS,INC./RIDGEFIELD-2019-BI-032320

PATIENT
  Age: 80 Year
  Sex: Male

DRUGS (1)
  1. OFEV [Suspect]
     Active Substance: NINTEDANIB
     Indication: IDIOPATHIC PULMONARY FIBROSIS
     Route: 048
     Dates: start: 20190712, end: 20190801

REACTIONS (4)
  - Insomnia [Not Recovered/Not Resolved]
  - Dyspnoea [Recovered/Resolved]
  - Gait disturbance [Recovered/Resolved]
  - Death [Fatal]

NARRATIVE: CASE EVENT DATE: 20190805
